FAERS Safety Report 10606580 (Version 3)
Quarter: 2014Q4

REPORT INFORMATION
  Report Type: Report from Study
  Country: KR (occurrence: KR)
  Receive Date: 20141125
  Receipt Date: 20141126
  Transmission Date: 20150529
  Serious: Yes (Hospitalization)
  Sender: FDA-Public Use
  Company Number: KR-MERCK-1410KOR002015

PATIENT
  Age: 73 Year
  Sex: Male
  Weight: 67 kg

DRUGS (10)
  1. PEMBROLIZUMAB. [Suspect]
     Active Substance: PEMBROLIZUMAB
     Indication: HEAD AND NECK CANCER
     Dosage: 10 MG/KG, Q2W
     Route: 042
     Dates: start: 20140917, end: 20140917
  2. ACTIQ [Concomitant]
     Active Substance: FENTANYL CITRATE
     Indication: PAIN IN JAW
     Dosage: TOTAL DAILY DOSE: 200 MICROGRAM, PRN
     Route: 048
     Dates: start: 20140917, end: 20140925
  3. FENTANYL. [Concomitant]
     Active Substance: FENTANYL
     Indication: PAIN IN JAW
     Dosage: TOTAL DAILY DOSE: 25 MICROGRAM/HOUR, FORMULATION: PATCH, FREQUENCY: OTHER
     Route: 061
     Dates: start: 201404, end: 20140925
  4. ENCOVER [Concomitant]
     Indication: NUTRITIONAL SUPPLEMENTATION
     Dosage: 200 ML, QD
     Route: 048
  5. GODEX CAP [Concomitant]
     Indication: PROPHYLAXIS
     Dosage: 2 UNITS, BID
     Route: 048
  6. AMBRECT [Concomitant]
     Indication: PAIN IN JAW
     Dosage: 30 MG, TID
     Route: 048
     Dates: start: 20140917
  7. CONCOR [Concomitant]
     Active Substance: BISOPROLOL FUMARATE
     Indication: HYPERTENSION
     Dosage: 2.5 MG, QD
     Route: 048
  8. FENTANYL. [Concomitant]
     Active Substance: FENTANYL
     Indication: PAIN IN JAW
     Dosage: TOTAL DAILY DOSE: 12 MICROGRAM/HOUR, FORMULATION: PATCH, FREQUENCY: OTHER.
     Route: 061
     Dates: start: 20140917, end: 20140925
  9. PEMBROLIZUMAB. [Suspect]
     Active Substance: PEMBROLIZUMAB
     Dosage: 10 MG/KG, Q2W
     Route: 042
     Dates: start: 20141008, end: 20141008
  10. MICARDIS PLUS [Concomitant]
     Active Substance: HYDROCHLOROTHIAZIDE\TELMISARTAN
     Indication: HYPERTENSION
     Dosage: 1 TABLET, QD
     Route: 048

REACTIONS (2)
  - Pneumonia aspiration [Unknown]
  - Pain in jaw [Recovered/Resolved]

NARRATIVE: CASE EVENT DATE: 20140919
